FAERS Safety Report 25492383 (Version 1)
Quarter: 2025Q2

REPORT INFORMATION
  Report Type: Report from Study
  Country: CO (occurrence: CO)
  Receive Date: 20250630
  Receipt Date: 20250630
  Transmission Date: 20250716
  Serious: Yes (Other)
  Sender: TAKEDA
  Company Number: CO-TAKEDA-2021TUS066290

PATIENT
  Age: 63 Year
  Sex: Female
  Weight: 104 kg

DRUGS (1)
  1. VEDOLIZUMAB [Suspect]
     Active Substance: VEDOLIZUMAB
     Indication: Colitis ulcerative

REACTIONS (40)
  - Bile duct stenosis [Unknown]
  - Hypothyroidism [Unknown]
  - Bone pain [Unknown]
  - Abdominal pain upper [Unknown]
  - Chest pain [Unknown]
  - Eye irritation [Unknown]
  - Intervertebral disc protrusion [Unknown]
  - Ear discomfort [Recovering/Resolving]
  - Pain [Recovering/Resolving]
  - Irritability [Recovering/Resolving]
  - Eye pain [Recovering/Resolving]
  - Gait disturbance [Unknown]
  - Depressed mood [Recovering/Resolving]
  - Anxiety [Unknown]
  - Treatment noncompliance [Unknown]
  - Body height decreased [Unknown]
  - Weight increased [Unknown]
  - Eye pruritus [Unknown]
  - Helicobacter infection [Unknown]
  - Dry eye [Unknown]
  - Photophobia [Unknown]
  - Inappropriate schedule of product administration [Unknown]
  - Ocular discomfort [Unknown]
  - Ocular hyperaemia [Unknown]
  - Memory impairment [Unknown]
  - Obesity [Unknown]
  - Umbilical hernia [Unknown]
  - Hiatus hernia [Unknown]
  - Hepatic steatosis [Unknown]
  - Ear pain [Recovering/Resolving]
  - Malaise [Recovering/Resolving]
  - Palpitations [Recovering/Resolving]
  - Dizziness [Recovering/Resolving]
  - Nasal congestion [Unknown]
  - Arthralgia [Recovering/Resolving]
  - Headache [Recovering/Resolving]
  - Fatigue [Recovering/Resolving]
  - Sinusitis [Recovered/Resolved]
  - Cough [Unknown]
  - Pyrexia [Recovering/Resolving]

NARRATIVE: CASE EVENT DATE: 20211017
